FAERS Safety Report 10060672 (Version 1)
Quarter: 2014Q2

REPORT INFORMATION
  Report Type: Spontaneous
  Country: CH (occurrence: CH)
  Receive Date: 20140404
  Receipt Date: 20140404
  Transmission Date: 20141212
  Serious: Yes (Hospitalization)
  Sender: FDA-Public Use
  Company Number: CH-US-EMD SERONO, INC.-7279198

PATIENT
  Sex: Female
  Weight: 64 kg

DRUGS (5)
  1. OVITRELLE [Suspect]
     Indication: IN VITRO FERTILISATION
     Route: 058
     Dates: start: 20140308, end: 20140308
  2. MENOPUR                            /01277604/ [Suspect]
     Indication: IN VITRO FERTILISATION
     Route: 058
     Dates: start: 20140225, end: 20140307
  3. ELEVIT PRONATAL                    /01730301/ [Concomitant]
     Indication: VITAMIN SUPPLEMENTATION
     Route: 048
  4. CRINONE [Concomitant]
     Indication: IN VITRO FERTILISATION
     Route: 067
  5. DAFALGAN                           /00020001/ [Concomitant]
     Indication: PRODUCT USED FOR UNKNOWN INDICATION
     Route: 048

REACTIONS (5)
  - Pyrexia [Recovered/Resolved]
  - Chills [Recovered/Resolved]
  - Dizziness postural [Recovered/Resolved]
  - Presyncope [Recovered/Resolved]
  - Ovarian hyperstimulation syndrome [Unknown]
